FAERS Safety Report 6141805-9 (Version None)
Quarter: 2009Q2

REPORT INFORMATION
  Report Type: 
  Country: None (occurrence: None)
  Receive Date: 20090402
  Receipt Date: 20090223
  Transmission Date: 20091009
  Serious: No
  Sender: FDA-Public Use
  Company Number: US-ABBOTT-09P-163-0559039-00

PATIENT
  Sex: Female
  Weight: 56.75 kg

DRUGS (3)
  1. LUPRON DEPOT [Suspect]
     Indication: UTERINE LEIOMYOMA
     Route: 030
     Dates: start: 20000101, end: 20010101
  2. LUPRON DEPOT [Suspect]
     Route: 030
     Dates: start: 20070101
  3. ZYRTEC [Concomitant]
     Indication: SEASONAL ALLERGY

REACTIONS (2)
  - PROCEDURAL COMPLICATION [None]
  - UTERINE LEIOMYOMA [None]
